FAERS Safety Report 25898499 (Version 3)
Quarter: 2025Q4

REPORT INFORMATION
  Report Type: Report from Study
  Country: CA (occurrence: CA)
  Receive Date: 20251009
  Receipt Date: 20251128
  Transmission Date: 20260118
  Serious: Yes (Other)
  Sender: CURRAX PHARMACEUTICALS
  Company Number: CA-BAUSCH-BH-2025-018226

PATIENT
  Age: 74 Year
  Sex: Female
  Weight: 90.703 kg

DRUGS (3)
  1. CONTRAVE [Suspect]
     Active Substance: BUPROPION HYDROCHLORIDE\NALTREXONE HYDROCHLORIDE
     Indication: Anxiety
     Dosage: STRENGTH: 90/8MG, 1 TAB AM, 1.0 DOSAGE FORM (1 DOSAGE FORM, 1 IN 24 HOUR)
     Route: 048
     Dates: start: 20250925, end: 20251001
  2. CONTRAVE [Suspect]
     Active Substance: BUPROPION HYDROCHLORIDE\NALTREXONE HYDROCHLORIDE
     Indication: Weight control
     Dosage: STRENGTH: 90/8MG, 1 TAB AM -1 TAB PM, 2.0 DOSAGE FORM (1 DOSAGE FORM, 1 IN 12 HOUR)
     Route: 048
     Dates: start: 20251002
  3. CYMBALTA [Concomitant]
     Active Substance: DULOXETINE HYDROCHLORIDE
     Indication: Anxiety
     Dosage: DAILY, ONGOING
     Route: 048
     Dates: start: 2024

REACTIONS (7)
  - Choking [Not Recovered/Not Resolved]
  - Foreign body in throat [Not Recovered/Not Resolved]
  - Pneumonia [Unknown]
  - Blood cholesterol increased [Unknown]
  - Expulsion of medication [Unknown]
  - Product use complaint [Unknown]
  - Product size issue [Unknown]

NARRATIVE: CASE EVENT DATE: 20250925
